APPROVED DRUG PRODUCT: RETEVMO
Active Ingredient: SELPERCATINIB
Strength: 80MG
Dosage Form/Route: CAPSULE;ORAL
Application: N213246 | Product #002
Applicant: ELI LILLY AND CO
Approved: May 8, 2020 | RLD: Yes | RS: Yes | Type: RX

PATENTS:
Patent 12138250 | Expires: Oct 10, 2038
Patent 12138250 | Expires: Oct 10, 2038
Patent 12138250 | Expires: Oct 10, 2038
Patent 12138250 | Expires: Oct 10, 2038
Patent 10137124 | Expires: Oct 10, 2037
Patent 10584124 | Expires: Oct 10, 2038
Patent 10786489 | Expires: Oct 10, 2038
Patent 10137124 | Expires: Oct 10, 2037
Patent 10137124 | Expires: Oct 10, 2037
Patent 10137124 | Expires: Oct 10, 2037
Patent 10172851 | Expires: Oct 10, 2037
Patent 10172851 | Expires: Oct 10, 2037
Patent 10172851 | Expires: Oct 10, 2037
Patent 10584124 | Expires: Oct 10, 2038
Patent 10584124 | Expires: Oct 10, 2038
Patent 10584124 | Expires: Oct 10, 2038
Patent 10786489 | Expires: Oct 10, 2038
Patent 10786489 | Expires: Oct 10, 2038
Patent 10786489 | Expires: Oct 10, 2038
Patent 10172851 | Expires: Oct 10, 2037
Patent 10112942 | Expires: Oct 10, 2037
Patent 12138250*PED | Expires: Apr 10, 2039
Patent 10786489*PED | Expires: Apr 10, 2039
Patent 10172851*PED | Expires: Apr 10, 2038
Patent 10137124*PED | Expires: Apr 10, 2038
Patent 10584124*PED | Expires: Apr 10, 2039
Patent 10112942*PED | Expires: Apr 10, 2038

EXCLUSIVITY:
Code: M-311 | Date: Sep 27, 2027
Code: M-312 | Date: Sep 27, 2027
Code: NPP | Date: May 29, 2027
Code: ODE-301 | Date: May 8, 2027
Code: ODE-302 | Date: May 8, 2027
Code: ODE-303 | Date: May 8, 2027
Code: ODE-409 | Date: Sep 21, 2029
Code: ODE-412 | Date: Sep 21, 2029
Code: ODE-484 | Date: May 29, 2031
Code: ODE-485 | Date: May 29, 2031
Code: ODE-487 | Date: May 29, 2031
Code: PED | Date: Nov 8, 2027
Code: PED | Date: Nov 8, 2027
Code: PED | Date: Nov 8, 2027
Code: PED | Date: Mar 27, 2028
Code: PED | Date: Mar 27, 2028
Code: PED | Date: Nov 29, 2031
Code: PED | Date: Nov 29, 2031
Code: PED | Date: Nov 29, 2031
Code: PED | Date: Mar 21, 2030
Code: PED | Date: Mar 21, 2030
Code: PED | Date: Nov 29, 2027